FAERS Safety Report 25898477 (Version 1)
Quarter: 2025Q4

REPORT INFORMATION
  Report Type: Spontaneous
  Country: JP (occurrence: JP)
  Receive Date: 20251009
  Receipt Date: 20251009
  Transmission Date: 20260118
  Serious: Yes (Other)
  Sender: TAKEDA
  Company Number: JP-TAKEDA-2025TJP009823

PATIENT
  Age: 72 Year
  Sex: Male

DRUGS (2)
  1. ALUNBRIG [Suspect]
     Active Substance: BRIGATINIB
     Indication: Non-small cell lung cancer metastatic
     Dosage: UNK
  2. ALUNBRIG [Suspect]
     Active Substance: BRIGATINIB
     Dosage: UNK

REACTIONS (6)
  - Organising pneumonia [Recovering/Resolving]
  - Blood creatine phosphokinase increased [Recovering/Resolving]
  - Aspartate aminotransferase increased [Recovering/Resolving]
  - Alanine aminotransferase increased [Recovering/Resolving]
  - Photosensitivity reaction [Recovering/Resolving]
  - Photosensitivity reaction [Not Recovered/Not Resolved]
